FAERS Safety Report 23533941 (Version 1)
Quarter: 2024Q1

REPORT INFORMATION
  Report Type: Spontaneous
  Country: US (occurrence: US)
  Receive Date: 20240216
  Receipt Date: 20240216
  Transmission Date: 20240410
  Serious: No
  Sender: FDA-Public Use
  Company Number: US-GALDERMA-US2024000900

PATIENT

DRUGS (3)
  1. DIFFERIN GEL [Suspect]
     Active Substance: ADAPALENE
     Indication: Acne
     Dosage: 1 DOSAGE FORM, 0.5 OZ, NIGHTLY, APPLIED ON FACE
     Route: 061
     Dates: start: 20240108, end: 20240115
  2. COSMETICS [Suspect]
     Active Substance: COSMETICS
     Indication: Skin exfoliation
     Dosage: 1 DOSAGE FORM, 04 FL OZ, USED ONCE, APPLIED ON FACE
     Route: 061
     Dates: start: 20240117
  3. COSMETICS [Suspect]
     Active Substance: COSMETICS
     Indication: Pruritus

REACTIONS (6)
  - Application site pruritus [Not Recovered/Not Resolved]
  - Skin exfoliation [Not Recovered/Not Resolved]
  - Application site erythema [Recovering/Resolving]
  - Dry skin [Not Recovered/Not Resolved]
  - Eczema [Not Recovered/Not Resolved]
  - Application site pain [Recovered/Resolved]

NARRATIVE: CASE EVENT DATE: 20240108
